FAERS Safety Report 5415398-5 (Version None)
Quarter: 2007Q3

REPORT INFORMATION
  Report Type: 
  Country: None (occurrence: None)
  Receive Date: 20070813
  Receipt Date: 20070813
  Transmission Date: 20080115
  Serious: No
  Sender: FDA-Public Use
  Company Number: None

PATIENT
  Age: 54 Year
  Sex: Male

DRUGS (2)
  1. VENLAFAXINE HCL [Suspect]
     Dosage: 75MG EVERY DAY PO
     Route: 048
     Dates: start: 20070222, end: 20070321
  2. LEVORPHANOL TARTRATE [Suspect]
     Dosage: 2MG QID PO
     Route: 048
     Dates: start: 20070222, end: 20070223

REACTIONS (1)
  - RASH [None]
